FAERS Safety Report 7370646-X (Version None)
Quarter: 2011Q1

REPORT INFORMATION
  Report Type: 
  Country: None (occurrence: None)
  Receive Date: 20110323
  Receipt Date: 20110311
  Transmission Date: 20110831
  Serious: Yes (Other)
  Sender: FDA-Public Use
  Company Number: CA-AMGEN-CANCT2011002524

PATIENT
  Age: 81 Year
  Sex: Female

DRUGS (8)
  1. TREXALL [Suspect]
     Dosage: 2.5 MG, UNK
     Route: 048
     Dates: start: 20090524, end: 20100921
  2. TOBRADEX [Concomitant]
     Dosage: UNK UNK, QD
     Route: 047
     Dates: start: 20090601, end: 20110105
  3. ALENDRONATE [Concomitant]
     Indication: OSTEOPOROSIS
     Dosage: 70 MG, QWK
     Route: 048
     Dates: start: 20090312
  4. REMICADE [Concomitant]
     Dosage: 100 MG, QD
     Route: 060
     Dates: start: 20110111, end: 20110113
  5. MICARDIS [Concomitant]
     Dosage: UNK UNK, QD
     Route: 048
     Dates: start: 20100301
  6. ETANERCEPT [Suspect]
     Indication: RHEUMATOID ARTHRITIS
     Dosage: 50 MG, QWK
     Route: 058
     Dates: start: 20090908, end: 20110113
  7. FOLIC ACID [Concomitant]
     Dosage: 5 MG, QD
     Route: 048
     Dates: start: 19990601
  8. ASCORBIC ACID [Concomitant]
     Dosage: 500 MG, QD

REACTIONS (1)
  - ULCERATIVE KERATITIS [None]
